FAERS Safety Report 5715649-3 (Version None)
Quarter: 2008Q2

REPORT INFORMATION
  Report Type: 
  Country: None (occurrence: None)
  Receive Date: 20080423
  Receipt Date: 20080423
  Transmission Date: 20081010
  Serious: No
  Sender: FDA-Public Use
  Company Number: None

PATIENT
  Sex: Female
  Weight: 87.9978 kg

DRUGS (2)
  1. TRILEPTAL [Suspect]
     Indication: CONVULSION
     Dosage: 600MG 1/2 AND 1 BID
     Dates: start: 20060101
  2. KEPPRA [Suspect]
     Indication: CONVULSION
     Dosage: 1600MG 1, 1 1/2 BID
     Dates: start: 20060101

REACTIONS (2)
  - CONVULSION [None]
  - EUPHORIC MOOD [None]
